FAERS Safety Report 8960278 (Version 1)
Quarter: 2012Q4

REPORT INFORMATION
  Report Type: 
  Country: US (occurrence: US)
  Receive Date: 20121212
  Receipt Date: 20121212
  Transmission Date: 20130627
  Serious: Yes (Other)
  Sender: FDA-Public Use
  Company Number: US-PFIZER INC-2012308196

PATIENT
  Age: 21 Year
  Sex: Female
  Weight: 102 kg

DRUGS (1)
  1. NORGESTREL,ETHINYL ESTRADIOL,PLACEBO [Suspect]
     Indication: MENSTRUAL IRREGULARITY
     Dosage: One tablet daily
     Route: 048
     Dates: start: 20121105

REACTIONS (4)
  - Abortion spontaneous [Unknown]
  - Haemorrhage in pregnancy [Unknown]
  - Abdominal pain [Unknown]
  - Off label use [Unknown]
